FAERS Safety Report 20875610 (Version 1)
Quarter: 2022Q2

REPORT INFORMATION
  Report Type: Spontaneous
  Country: DE (occurrence: DE)
  Receive Date: 20220526
  Receipt Date: 20220526
  Transmission Date: 20220720
  Serious: Yes (Other)
  Sender: FDA-Public Use
  Company Number: None

PATIENT
  Sex: Male

DRUGS (1)
  1. VALSARTAN [Suspect]
     Active Substance: VALSARTAN
     Indication: Arrhythmia
     Dosage: 80 MG, QD
     Route: 065
     Dates: start: 2021, end: 202110

REACTIONS (10)
  - Nasal injury [Unknown]
  - Nasal disorder [Unknown]
  - Dysarthria [Unknown]
  - Dyspnoea at rest [Not Recovered/Not Resolved]
  - Hyperhidrosis [Unknown]
  - Nasal congestion [Unknown]
  - Visual impairment [Unknown]
  - Malaise [Unknown]
  - Asthenia [Unknown]
  - Dizziness [Unknown]

NARRATIVE: CASE EVENT DATE: 20210101
